FAERS Safety Report 13053578 (Version 1)
Quarter: 2016Q4

REPORT INFORMATION
  Report Type: Spontaneous
  Country: US (occurrence: US)
  Receive Date: 20161222
  Receipt Date: 20161222
  Transmission Date: 20170207
  Serious: No
  Sender: FDA-Public Use
  Company Number: PHEH2016US033244

PATIENT
  Sex: Female

DRUGS (1)
  1. LETROZOLE. [Suspect]
     Active Substance: LETROZOLE
     Indication: PRODUCT USED FOR UNKNOWN INDICATION
     Route: 065

REACTIONS (7)
  - Muscle spasms [Unknown]
  - Anxiety [Unknown]
  - Stress [Unknown]
  - Nausea [Unknown]
  - Paraesthesia [Unknown]
  - Back pain [Unknown]
  - Fatigue [Unknown]
